FAERS Safety Report 9122643 (Version 2)
Quarter: 2013Q1

REPORT INFORMATION
  Report Type: Spontaneous
  Country: US (occurrence: None)
  Receive Date: 20130131
  Receipt Date: 20130213
  Transmission Date: 20140127
  Serious: Yes (Death)
  Sender: FDA-Public Use
  Company Number: 2013-018

PATIENT
  Age: 61 Year
  Sex: Female

DRUGS (1)
  1. FAZACLO (CLOZAPINE, USP) ODT (ORAL DISINTEGRATING TABLET) [Suspect]
     Dosage: 100-350 MG  QD,  ORAL?02/05/2007  TO  UNK
     Route: 048
     Dates: start: 20070205

REACTIONS (2)
  - Breast cancer female [None]
  - Refusal of treatment by patient [None]
